FAERS Safety Report 8225159-X (Version None)
Quarter: 2012Q1

REPORT INFORMATION
  Report Type: 
  Country: None (occurrence: None)
  Receive Date: 20120321
  Receipt Date: 20120312
  Transmission Date: 20120608
  Serious: Yes (Disabling)
  Sender: FDA-Public Use
  Company Number: US-JNJFOC-20120200610

PATIENT
  Sex: Female

DRUGS (8)
  1. INVEGA SUSTENNA [Suspect]
     Dosage: 234 MG PLUS 78 MG
     Route: 030
     Dates: start: 20111205
  2. INVEGA SUSTENNA [Suspect]
     Route: 030
     Dates: start: 20110318
  3. INVEGA SUSTENNA [Suspect]
     Dosage: 234 MG PLUS 78 MG
     Route: 030
     Dates: start: 20111205
  4. INVEGA SUSTENNA [Suspect]
     Route: 030
     Dates: start: 20110318
  5. INVEGA SUSTENNA [Suspect]
     Indication: TACHYPHRENIA
     Route: 030
  6. INVEGA SUSTENNA [Suspect]
     Route: 030
     Dates: start: 20120131
  7. INVEGA SUSTENNA [Suspect]
     Indication: BIPOLAR DISORDER
     Route: 030
  8. INVEGA SUSTENNA [Suspect]
     Route: 030
     Dates: start: 20120131

REACTIONS (7)
  - DYSPNOEA [None]
  - DYSPHONIA [None]
  - APHONIA [None]
  - OVERDOSE [None]
  - ANXIETY [None]
  - MOOD SWINGS [None]
  - ANGER [None]
